FAERS Safety Report 24255906 (Version 1)
Quarter: 2024Q3

REPORT INFORMATION
  Report Type: Spontaneous
  Country: US (occurrence: US)
  Receive Date: 20240827
  Receipt Date: 20240827
  Transmission Date: 20241016
  Serious: No
  Sender: PFIZER
  Company Number: US-PFIZER INC-202400242507

PATIENT
  Age: 19 Year
  Sex: Female

DRUGS (2)
  1. NURTEC ODT [Suspect]
     Active Substance: RIMEGEPANT SULFATE
     Indication: Migraine
     Dosage: UNK, DAILY
  2. QULIPTA [Concomitant]
     Active Substance: ATOGEPANT
     Indication: Migraine prophylaxis
     Dosage: UNK, DAILY

REACTIONS (1)
  - Amenorrhoea [Recovered/Resolved]
